FAERS Safety Report 20454383 (Version 1)
Quarter: 2022Q1

REPORT INFORMATION
  Report Type: Spontaneous
  Country: US (occurrence: None)
  Receive Date: 20220209
  Receipt Date: 20220209
  Transmission Date: 20220423
  Serious: No
  Sender: FDA-Public Use
  Company Number: None

PATIENT
  Sex: Male

DRUGS (1)
  1. NINLARO [Suspect]
     Active Substance: IXAZOMIB CITRATE
     Indication: Plasma cell myeloma
     Dosage: DOSING- TAKE L CAPSULE BY MOUTH ON DAYS 1, 8, 15 OF A 28 DAY CYCLE. ??
     Route: 048
     Dates: start: 202004

REACTIONS (2)
  - Paraesthesia [None]
  - Paraesthesia [None]
